FAERS Safety Report 20747736 (Version 2)
Quarter: 2022Q4

REPORT INFORMATION
  Report Type: Spontaneous
  Country: US (occurrence: US)
  Receive Date: 20220425
  Receipt Date: 20221013
  Transmission Date: 20230113
  Serious: No
  Sender: FDA-Public Use
  Company Number: US-SA-SAC20220421000629

PATIENT
  Age: 61 Year
  Sex: Male
  Weight: 104 kg

DRUGS (7)
  1. DUPIXENT [Suspect]
     Active Substance: DUPILUMAB
     Indication: Psoriasis
     Dosage: 300 MG, QOW
     Route: 058
     Dates: start: 202203
  2. VITAMIN D2 [Concomitant]
     Active Substance: ERGOCALCIFEROL
     Dosage: UNK
  3. IRON [Concomitant]
     Active Substance: IRON
     Dosage: UNK
  4. XYZAL [Concomitant]
     Active Substance: LEVOCETIRIZINE DIHYDROCHLORIDE
     Dosage: UNK
  5. CLOBETASOL PROPIONATE [Concomitant]
     Active Substance: CLOBETASOL PROPIONATE
     Dosage: UNK
  6. AMLODIPINE BESYLATE [Concomitant]
     Active Substance: AMLODIPINE BESYLATE
     Dosage: UNK
  7. LEVOTHYROXINE [Concomitant]
     Active Substance: LEVOTHYROXINE
     Dosage: UNK

REACTIONS (7)
  - Ocular hyperaemia [Not Recovered/Not Resolved]
  - Eye swelling [Unknown]
  - Eye pruritus [Unknown]
  - Blood triglycerides increased [Unknown]
  - Low density lipoprotein increased [Unknown]
  - Treatment failure [Unknown]
  - Product use in unapproved indication [Unknown]
